FAERS Safety Report 5526862-2 (Version None)
Quarter: 2007Q4

REPORT INFORMATION
  Report Type: 
  Country: None (occurrence: None)
  Receive Date: 20071127
  Receipt Date: 20071120
  Transmission Date: 20080405
  Serious: Yes (Hospitalization)
  Sender: FDA-Public Use
  Company Number: PHBS2007IN19783

PATIENT
  Age: 29 Year
  Sex: Male

DRUGS (2)
  1. DICLOFENAC SODIUM [Suspect]
     Route: 030
  2. ANTIVENIN [Suspect]
     Route: 042

REACTIONS (6)
  - EMBOLIA CUTIS MEDICAMENTOSA [None]
  - INJECTION SITE NECROSIS [None]
  - INJECTION SITE PAIN [None]
  - INJECTION SITE SCAR [None]
  - INJECTION SITE ULCER [None]
  - INJECTION SITE VESICLES [None]
